FAERS Safety Report 16627190 (Version 2)
Quarter: 2019Q3

REPORT INFORMATION
  Report Type: Spontaneous
  Country: CA (occurrence: CA)
  Receive Date: 20190724
  Receipt Date: 20190826
  Transmission Date: 20191004
  Serious: Yes (Death, Hospitalization, Other)
  Sender: FDA-Public Use
  Company Number: CA-TEVA-2019-CA-1079672

PATIENT
  Age: 37 Year
  Sex: Male

DRUGS (33)
  1. METRONIDAZOLE. [Suspect]
     Active Substance: METRONIDAZOLE
     Indication: AEROMONAS INFECTION
     Dosage: 1000 MILLIGRAM DAILY;
     Route: 048
  2. PIPERACILLIN AND TAZOBACTAM [Suspect]
     Active Substance: PIPERACILLIN SODIUM\TAZOBACTAM SODIUM
     Indication: EVIDENCE BASED TREATMENT
     Dosage: 13.5 GRAM DAILY;
     Route: 042
  3. PIPERACILLIN AND TAZOBACTAM [Suspect]
     Active Substance: PIPERACILLIN SODIUM\TAZOBACTAM SODIUM
     Indication: ESCHERICHIA BACTERAEMIA
     Route: 065
  4. VANCOMYCIN HYDROCHLORIDE. [Suspect]
     Active Substance: VANCOMYCIN HYDROCHLORIDE
     Indication: PYREXIA
  5. ANTITHYMOCYTE IMMUNOGLOBULIN (HORSE) [Suspect]
     Active Substance: EQUINE THYMOCYTE IMMUNE GLOBULIN
     Indication: APLASTIC ANAEMIA
     Route: 065
  6. CICLOSPORIN [Suspect]
     Active Substance: CYCLOSPORINE
     Route: 065
  7. VALTREX [Concomitant]
     Active Substance: VALACYCLOVIR HYDROCHLORIDE
     Route: 048
  8. MEROPENEM. [Suspect]
     Active Substance: MEROPENEM
     Indication: AEROMONAS INFECTION
     Dosage: 3000 MILLIGRAM DAILY; POWDER FOR SOLUTION INTRAVENOUS
     Route: 042
  9. VANCOMYCIN HYDROCHLORIDE. [Suspect]
     Active Substance: VANCOMYCIN HYDROCHLORIDE
     Indication: FREQUENT BOWEL MOVEMENTS
  10. PANTOLOC[PANTOPRAZOLE] [Concomitant]
     Route: 048
  11. CIPROFLOXACIN HYDROCHLORIDE. [Suspect]
     Active Substance: CIPROFLOXACIN HYDROCHLORIDE
     Indication: PYREXIA
  12. CLINDAMYCIN PHOSPHATE. [Suspect]
     Active Substance: CLINDAMYCIN PHOSPHATE
     Indication: AEROMONAS INFECTION
     Dosage: 1800 MILLIGRAM DAILY;
     Route: 042
  13. VANCOMYCIN HYDROCHLORIDE. [Suspect]
     Active Substance: VANCOMYCIN HYDROCHLORIDE
     Indication: EVIDENCE BASED TREATMENT
     Dosage: 3 GRAM DAILY;
     Route: 042
  14. VANCOMYCIN HYDROCHLORIDE. [Suspect]
     Active Substance: VANCOMYCIN HYDROCHLORIDE
     Indication: AEROMONAS INFECTION
     Route: 065
  15. PANTOLOC[PANTOPRAZOLE] [Concomitant]
     Indication: PRODUCT USED FOR UNKNOWN INDICATION
     Route: 048
  16. PIPERACILLIN SODIUM/TAZOBACTAM SODIUM [Concomitant]
     Active Substance: PIPERACILLIN SODIUM\TAZOBACTAM SODIUM
     Indication: ABDOMINAL PAIN
     Route: 065
  17. METRONIDAZOLE. [Suspect]
     Active Substance: METRONIDAZOLE
     Indication: FREQUENT BOWEL MOVEMENTS
  18. ANTITHYMOCYTE IMMUNOGLOBULIN (HORSE) [Suspect]
     Active Substance: EQUINE THYMOCYTE IMMUNE GLOBULIN
     Dosage: 40 MG/KG DAILY;
     Route: 065
  19. CICLOSPORIN [Suspect]
     Active Substance: CYCLOSPORINE
     Indication: APLASTIC ANAEMIA
     Dosage: 450 MILLIGRAM DAILY;
     Route: 048
  20. PREDNISONE. [Suspect]
     Active Substance: PREDNISONE
     Indication: APLASTIC ANAEMIA
     Route: 065
  21. ANTITHYMOCYTE IMMUNOGLOBULIN (HORSE) [Concomitant]
     Active Substance: EQUINE THYMOCYTE IMMUNE GLOBULIN
     Indication: APLASTIC ANAEMIA
  22. IMMUNE GLOBULIN(HUMAN) [Suspect]
     Active Substance: HUMAN IMMUNOGLOBULIN G
     Indication: AEROMONAS INFECTION
     Route: 042
  23. PIPERACILLIN SODIUM/TAZOBACTAM SODIUM [Concomitant]
     Active Substance: PIPERACILLIN SODIUM\TAZOBACTAM SODIUM
     Indication: PYREXIA
     Route: 042
  24. CIPROFLOXACIN HYDROCHLORIDE. [Suspect]
     Active Substance: CIPROFLOXACIN HYDROCHLORIDE
     Indication: FREQUENT BOWEL MOVEMENTS
  25. PREDNISONE. [Suspect]
     Active Substance: PREDNISONE
     Indication: APLASTIC ANAEMIA
     Route: 065
  26. DAPSONE. [Concomitant]
     Active Substance: DAPSONE
     Indication: ANTIFUNGAL PROPHYLAXIS
     Route: 048
  27. CIPROFLOXACIN HYDROCHLORIDE. [Suspect]
     Active Substance: CIPROFLOXACIN HYDROCHLORIDE
     Indication: AEROMONAS INFECTION
     Dosage: 1000 MILLIGRAM DAILY;
     Route: 048
  28. METRONIDAZOLE. [Suspect]
     Active Substance: METRONIDAZOLE
     Indication: EVIDENCE BASED TREATMENT
     Route: 065
  29. METRONIDAZOLE. [Suspect]
     Active Substance: METRONIDAZOLE
     Indication: PYREXIA
  30. PREDNISONE. [Suspect]
     Active Substance: PREDNISONE
     Route: 065
  31. PREDNISONE. [Suspect]
     Active Substance: PREDNISONE
     Route: 065
  32. CICLOSPORIN [Concomitant]
     Active Substance: CYCLOSPORINE
     Indication: APLASTIC ANAEMIA
     Dosage: 450 MILLIGRAM DAILY;
     Route: 048
  33. VALTREX [Concomitant]
     Active Substance: VALACYCLOVIR HYDROCHLORIDE
     Indication: ANTIFUNGAL PROPHYLAXIS
     Route: 048

REACTIONS (18)
  - Pyrexia [Fatal]
  - Acidosis [Fatal]
  - Escherichia bacteraemia [Fatal]
  - Drug resistance [Fatal]
  - Hyperkalaemia [Fatal]
  - Renal failure [Fatal]
  - Cardiac arrest [Fatal]
  - Petechiae [Fatal]
  - Proctalgia [Fatal]
  - Bowel movement irregularity [Fatal]
  - Drug ineffective [Fatal]
  - Aeromonas infection [Fatal]
  - Necrotising fasciitis [Fatal]
  - Septic shock [Fatal]
  - Treatment noncompliance [Fatal]
  - Escherichia infection [Fatal]
  - Hepatic necrosis [Fatal]
  - Pain in extremity [Fatal]
